FAERS Safety Report 5550123-9 (Version None)
Quarter: 2007Q4

REPORT INFORMATION
  Report Type: 
  Country: None (occurrence: None)
  Receive Date: 20071212
  Receipt Date: 20070424
  Transmission Date: 20080405
  Serious: No
  Sender: FDA-Public Use
  Company Number: US-AMGEN-KDL221363

PATIENT
  Sex: Male

DRUGS (13)
  1. ENBREL [Suspect]
     Indication: RHEUMATOID ARTHRITIS
     Route: 058
     Dates: start: 20060801
  2. CENTRUM [Concomitant]
  3. AMITRIPTLINE HCL [Concomitant]
  4. PREDNISONE [Concomitant]
  5. CHLORDIAZEPOXIDE [Concomitant]
  6. FLEXERIL [Concomitant]
     Dates: end: 20061201
  7. HYDROCHLOROTHIAZIDE [Concomitant]
  8. ATENOLOL [Concomitant]
  9. ALLOPURINOL [Concomitant]
  10. COLCHICINE [Concomitant]
  11. PROBENECID [Concomitant]
  12. HYDROCODONE BITARTRATE + ACETAMINOPHEN [Concomitant]
     Route: 048
  13. ASPIRIN [Concomitant]

REACTIONS (3)
  - ASTHENIA [None]
  - FALL [None]
  - LETHARGY [None]
